FAERS Safety Report 25610232 (Version 1)
Quarter: 2025Q3

REPORT INFORMATION
  Report Type: Spontaneous
  Country: US (occurrence: US)
  Receive Date: 20250728
  Receipt Date: 20250728
  Transmission Date: 20251020
  Serious: No
  Sender: SAREPTA THERAPEUTICS
  Company Number: US-SAREPTA THERAPEUTICS INC.-SRP2025-005903

PATIENT
  Age: 11 Year
  Sex: Male
  Weight: 29.8 kg

DRUGS (7)
  1. AMONDYS 45 [Suspect]
     Active Substance: CASIMERSEN
     Indication: Product used for unknown indication
     Route: 042
     Dates: end: 20250421
  2. AMONDYS 45 [Suspect]
     Active Substance: CASIMERSEN
     Route: 042
     Dates: start: 20250527
  3. COREG [Concomitant]
     Active Substance: CARVEDILOL
     Indication: Product used for unknown indication
     Dosage: 6.5 MILLIGRAM, BID
  4. PROZAC [Concomitant]
     Active Substance: FLUOXETINE HYDROCHLORIDE
     Indication: Product used for unknown indication
     Dosage: 20 MILLIGRAM, QD
  5. LISINOPRIL [Concomitant]
     Active Substance: LISINOPRIL
     Indication: Product used for unknown indication
  6. EPLERENONE [Concomitant]
     Active Substance: EPLERENONE
     Indication: Product used for unknown indication
     Dosage: 25 MILLIGRAM, QD
  7. PREDNISONE [Concomitant]
     Active Substance: PREDNISONE
     Indication: Product used for unknown indication

REACTIONS (3)
  - Dyspnoea [Recovered/Resolved]
  - Cough [Recovered/Resolved]
  - Rash [Unknown]

NARRATIVE: CASE EVENT DATE: 20250421
